FAERS Safety Report 11524158 (Version 1)
Quarter: 2015Q3

REPORT INFORMATION
  Report Type: Spontaneous
  Country: DE (occurrence: DE)
  Receive Date: 20150918
  Receipt Date: 20150918
  Transmission Date: 20151125
  Serious: Yes (Hospitalization, Disabling)
  Sender: FDA-Public Use
  Company Number: DE-ASTRAZENECA-2015SE89032

PATIENT
  Age: 689 Month
  Sex: Male
  Weight: 84 kg

DRUGS (4)
  1. CLOPIDOGREL [Concomitant]
     Active Substance: CLOPIDOGREL BISULFATE
  2. ALLOPURINOL. [Concomitant]
     Active Substance: ALLOPURINOL
  3. BISOPROLOL [Concomitant]
     Active Substance: BISOPROLOL
  4. BRILIQUE [Suspect]
     Active Substance: TICAGRELOR
     Indication: MYOCARDIAL INFARCTION
     Route: 048
     Dates: start: 201412, end: 201507

REACTIONS (10)
  - Decreased appetite [Recovered/Resolved]
  - Apathy [Recovered/Resolved]
  - Dizziness [Recovered/Resolved]
  - Loss of libido [Recovered/Resolved]
  - Cardiac failure acute [Recovered/Resolved]
  - Dyspnoea [Recovered/Resolved]
  - Retching [Recovered/Resolved]
  - Intracardiac thrombus [Unknown]
  - Sleep disorder [Recovered/Resolved]
  - Cough [Recovered/Resolved]

NARRATIVE: CASE EVENT DATE: 201412
